FAERS Safety Report 16583850 (Version 1)
Quarter: 2019Q3

REPORT INFORMATION
  Report Type: Spontaneous
  Country: US (occurrence: US)
  Receive Date: 20190716
  Receipt Date: 20190716
  Transmission Date: 20191004
  Serious: Yes (Hospitalization)
  Sender: FDA-Public Use
  Company Number: None

PATIENT
  Sex: Female

DRUGS (19)
  1. ALBUTEROL. [Concomitant]
     Active Substance: ALBUTEROL
  2. PREDNISONE. [Concomitant]
     Active Substance: PREDNISONE
  3. TADALAFIL. [Suspect]
     Active Substance: TADALAFIL
     Indication: PULMONARY ARTERIAL HYPERTENSION
     Route: 048
     Dates: start: 20181116
  4. NYSTATIN. [Concomitant]
     Active Substance: NYSTATIN
  5. ESCITALOPRAM [Concomitant]
     Active Substance: ESCITALOPRAM OXALATE
  6. PANTOPRAZOLE [Concomitant]
     Active Substance: PANTOPRAZOLE
  7. SYMBICORT [Concomitant]
     Active Substance: BUDESONIDE\FORMOTEROL FUMARATE DIHYDRATE
  8. BACLOFEN. [Concomitant]
     Active Substance: BACLOFEN
  9. METFORMIN [Concomitant]
     Active Substance: METFORMIN HYDROCHLORIDE
  10. SPIRONOLACT [Concomitant]
     Active Substance: SPIRONOLACTONE
  11. LEUKINE [Concomitant]
     Active Substance: SARGRAMOSTIM
  12. METOPROLOL. [Concomitant]
     Active Substance: METOPROLOL
  13. FUROSEMIDE. [Concomitant]
     Active Substance: FUROSEMIDE
  14. METHOCARBAM [Concomitant]
     Active Substance: METHOCARBAMOL
  15. AZITHROMYCIN ANHYDROUS. [Concomitant]
     Active Substance: AZITHROMYCIN ANHYDROUS
  16. CLOPIDOGREL [Concomitant]
     Active Substance: CLOPIDOGREL BISULFATE
  17. ATORVASTATIN [Concomitant]
     Active Substance: ATORVASTATIN
  18. BENZONATATE. [Concomitant]
     Active Substance: BENZONATATE
  19. POT CL [Concomitant]

REACTIONS (1)
  - Pulmonary arterial hypertension [None]
